FAERS Safety Report 5269449-1 (Version None)
Quarter: 2007Q1

REPORT INFORMATION
  Report Type: 
  Country: None (occurrence: None)
  Receive Date: 20070314
  Receipt Date: 20070301
  Transmission Date: 20070707
  Serious: Yes (Other)
  Sender: FDA-Public Use
  Company Number: 237604

PATIENT
  Age: 65 Year
  Sex: Male

DRUGS (1)
  1. MABTHERA (RITUXIMAB) CON FOR SOLUTION FOR INFUSION [Suspect]
     Indication: DRUG USE FOR UNKNOWN INDICATION

REACTIONS (1)
  - FACIAL PALSY [None]
